FAERS Safety Report 7680277-X (Version None)
Quarter: 2011Q3

REPORT INFORMATION
  Report Type: 
  Country: None (occurrence: None)
  Receive Date: 20110812
  Receipt Date: 20110803
  Transmission Date: 20111222
  Serious: Yes (Hospitalization)
  Sender: FDA-Public Use
  Company Number: DE-EISAI INC-E7389-01287-SPO-DE

PATIENT
  Age: 46 Year
  Sex: Female

DRUGS (3)
  1. HALAVEN [Suspect]
     Route: 041
     Dates: start: 20110609, end: 20110616
  2. ONDANSETRON [Concomitant]
     Indication: PROPHYLAXIS OF NAUSEA AND VOMITING
     Route: 041
     Dates: start: 20110609, end: 20110616
  3. DEXAMETHASONE [Concomitant]
     Indication: PROPHYLAXIS OF NAUSEA AND VOMITING
     Route: 041
     Dates: start: 20110609, end: 20110616

REACTIONS (4)
  - LEUKOPENIA [None]
  - SKIN REACTION [None]
  - MUCOSAL INFLAMMATION [None]
  - THROMBOCYTOPENIA [None]
